FAERS Safety Report 15168608 (Version 2)
Quarter: 2018Q3

REPORT INFORMATION
  Report Type: Report from Study
  Country: BR (occurrence: BR)
  Receive Date: 20180719
  Receipt Date: 20180820
  Transmission Date: 20181010
  Serious: Yes (Hospitalization)
  Sender: FDA-Public Use
  Company Number: BR-ALEXION PHARMACEUTICALS INC-A201807755

PATIENT
  Age: 37 Year
  Sex: Female

DRUGS (2)
  1. SOLIRIS [Suspect]
     Active Substance: ECULIZUMAB
     Dosage: 1200 MG, Q2W
     Route: 042
     Dates: start: 20161126
  2. SOLIRIS [Suspect]
     Active Substance: ECULIZUMAB
     Indication: ATYPICAL HAEMOLYTIC URAEMIC SYNDROME
     Dosage: 900 MG, QW
     Route: 042
     Dates: start: 20161027, end: 20161119

REACTIONS (9)
  - Skin atrophy [Unknown]
  - Fatigue [Unknown]
  - Skin fragility [Unknown]
  - Vascular shunt [Unknown]
  - Cough [Unknown]
  - Inappropriate schedule of drug administration [Recovered/Resolved]
  - Asthenia [Unknown]
  - Dyspnoea [Unknown]
  - Lung disorder [Unknown]

NARRATIVE: CASE EVENT DATE: 20180809
